FAERS Safety Report 7921568-4 (Version None)
Quarter: 2011Q4

REPORT INFORMATION
  Report Type: 
  Country: None (occurrence: None)
  Receive Date: 20111117
  Receipt Date: 20111109
  Transmission Date: 20120403
  Serious: Yes (Other)
  Sender: FDA-Public Use
  Company Number: PHHY2011US64633

PATIENT
  Sex: Male

DRUGS (8)
  1. AFINITOR [Suspect]
     Indication: TUBEROUS SCLEROSIS
  2. TOPAMAX [Concomitant]
     Dosage: UNK UKN, UNK
     Route: 065
  3. PHENOBARBITAL TAB [Concomitant]
     Dosage: UNK UKN, UNK
     Route: 065
  4. AFINITOR [Suspect]
     Indication: ASTROCYTOMA
     Dosage: 2.5 MG, DAILY
     Route: 048
     Dates: start: 20110713, end: 20111108
  5. MIRALAX [Concomitant]
     Dosage: UNK UKN, UNK
     Route: 065
  6. SABRIL [Concomitant]
     Dosage: UNK UKN, UNK
     Route: 065
  7. TAURINE [Concomitant]
     Dosage: UNK UKN, UNK
     Route: 065
  8. VITAMIN B6 [Concomitant]
     Dosage: UNK UKN, UNK
     Route: 065

REACTIONS (9)
  - COMPLEX PARTIAL SEIZURES [None]
  - COMA [None]
  - DIARRHOEA [None]
  - EAR INFECTION [None]
  - SOMNOLENCE [None]
  - VOMITING [None]
  - ELECTROLYTE IMBALANCE [None]
  - COUGH [None]
  - INFANTILE SPASMS [None]
